FAERS Safety Report 13023402 (Version 1)
Quarter: 2016Q4

REPORT INFORMATION
  Report Type: Report from Study
  Country: PL (occurrence: PL)
  Receive Date: 20161213
  Receipt Date: 20161213
  Transmission Date: 20170207
  Serious: Yes (Hospitalization)
  Sender: FDA-Public Use
  Company Number: PL-ASTELLAS-2016US045565

PATIENT
  Age: 6 Year
  Sex: Male

DRUGS (1)
  1. TACROLIMUS. [Suspect]
     Active Substance: TACROLIMUS
     Indication: DERMATITIS ATOPIC
     Dosage: 0.03 %, UNKNOWN FREQ.
     Route: 061
     Dates: start: 20111130

REACTIONS (4)
  - Ear infection [Unknown]
  - Off label use [Unknown]
  - Tonsillar hypertrophy [Unknown]
  - Adenotonsillectomy [Unknown]

NARRATIVE: CASE EVENT DATE: 20160913
